FAERS Safety Report 9146147 (Version 2)
Quarter: 2013Q2

REPORT INFORMATION
  Report Type: Spontaneous
  Country: US (occurrence: US)
  Receive Date: 20130307
  Receipt Date: 20130516
  Transmission Date: 20140414
  Serious: Yes (Other)
  Sender: FDA-Public Use
  Company Number: PHEH2013US005466

PATIENT
  Age: 19 Year
  Sex: Female

DRUGS (3)
  1. GILENYA [Suspect]
     Indication: MULTIPLE SCLEROSIS
     Dosage: 0.5 MG, QD
     Route: 048
     Dates: start: 20130211
  2. ZOLOFT [Concomitant]
     Dosage: 25 MG, QD
     Route: 048
  3. BACLOFEN [Concomitant]
     Dosage: 10 MG, PRN
     Route: 048

REACTIONS (3)
  - Arthralgia [Recovered/Resolved]
  - Back pain [Recovered/Resolved]
  - Viral infection [Unknown]
